FAERS Safety Report 6425031-1 (Version None)
Quarter: 2009Q4

REPORT INFORMATION
  Report Type: 
  Country: None (occurrence: None)
  Receive Date: 20091030
  Receipt Date: 20091030
  Transmission Date: 20100525
  Serious: Yes (Other)
  Sender: FDA-Public Use
  Company Number: None

PATIENT
  Age: 83 Year
  Sex: Male

DRUGS (4)
  1. COZAAR [Suspect]
     Indication: BLOOD PRESSURE
     Dosage: 25 MG DAILY
     Dates: start: 20091019
  2. COZAAR [Suspect]
     Indication: CARDIOMEGALY
     Dosage: 25 MG DAILY
     Dates: start: 20091019
  3. COZAAR [Suspect]
     Indication: BLOOD PRESSURE
     Dosage: 25 MG DAILY
     Dates: start: 20091020
  4. COZAAR [Suspect]
     Indication: CARDIOMEGALY
     Dosage: 25 MG DAILY
     Dates: start: 20091020

REACTIONS (10)
  - ABASIA [None]
  - ASTHENIA [None]
  - DIZZINESS [None]
  - DYSSTASIA [None]
  - FALL [None]
  - FEELING ABNORMAL [None]
  - RETCHING [None]
  - UNEVALUABLE EVENT [None]
  - VISION BLURRED [None]
  - VOMITING [None]
